FAERS Safety Report 8475066-2 (Version None)
Quarter: 2012Q2

REPORT INFORMATION
  Report Type: 
  Country: None (occurrence: None)
  Receive Date: 20120628
  Receipt Date: 20120619
  Transmission Date: 20120825
  Serious: Yes (Hospitalization)
  Sender: FDA-Public Use
  Company Number: CA-JNJFOC-20111006727

PATIENT
  Sex: Female
  Weight: 98 kg

DRUGS (1)
  1. REMICADE [Suspect]
     Indication: PRODUCT USED FOR UNKNOWN INDICATION
     Dosage: DOSE REPORTED AS Q 6-8 WEEKS.
     Route: 042

REACTIONS (3)
  - FISTULA [None]
  - URINARY TRACT INFECTION [None]
  - MATERNAL EXPOSURE DURING PREGNANCY [None]
